FAERS Safety Report 14085359 (Version 8)
Quarter: 2020Q1

REPORT INFORMATION
  Report Type: Spontaneous
  Country: US (occurrence: US)
  Receive Date: 20171013
  Receipt Date: 20200205
  Transmission Date: 20200409
  Serious: No
  Sender: FDA-Public Use
  Company Number: US-PFIZER INC-2017411343

PATIENT
  Age: 4 Year
  Sex: Male

DRUGS (13)
  1. RAPAMUNE [Suspect]
     Active Substance: SIROLIMUS
     Dosage: 0.5 MG, 2X/DAY (TWICE PO DAILY)
     Route: 048
     Dates: start: 20150514
  2. RAPAMUNE [Suspect]
     Active Substance: SIROLIMUS
     Indication: MALFORMATION VENOUS
     Dosage: 0.7 ML, DAILY
     Route: 048
     Dates: start: 20150514
  3. BACTRIM [Concomitant]
     Active Substance: SULFAMETHOXAZOLE\TRIMETHOPRIM
     Dosage: 10 ML, 2X/DAY  (ON MONDAYS)
     Route: 048
     Dates: start: 201505
  4. RAPAMUNE [Suspect]
     Active Substance: SIROLIMUS
     Indication: GAIT DISTURBANCE
     Dosage: 0.5 MG, TWICE DAILY
     Route: 048
  5. NOVAFERRUM [Concomitant]
     Active Substance: ASCORBIC ACID\FOLIC ACID\IRON
     Indication: MICROCYTOSIS
     Dosage: 150 MG, DAILY
     Route: 048
     Dates: start: 201510
  6. OMEGA 3 [FISH OIL;TOCOPHEROL] [Concomitant]
     Active Substance: FISH OIL\TOCOPHEROL
     Indication: LIPIDS INCREASED
     Dosage: UNK UNK, 2X/DAY
     Route: 048
     Dates: start: 201506
  7. RAPAMUNE [Suspect]
     Active Substance: SIROLIMUS
     Indication: COAGULOPATHY
     Dosage: 0.5 MG, DAILY
     Route: 048
  8. RAPAMUNE [Suspect]
     Active Substance: SIROLIMUS
     Indication: VASCULAR MALFORMATION
     Dosage: 1 MG, DAILY [TAKE 2 TABS (1MG TOTAL) BY MOUTH DAILY/EVERY EVENING]
     Route: 048
  9. NOVAFERRUM [Concomitant]
     Active Substance: ASCORBIC ACID\FOLIC ACID\IRON
     Dosage: 150 MG, DAILY
     Route: 048
     Dates: start: 20160818
  10. BACTRIM [Concomitant]
     Active Substance: SULFAMETHOXAZOLE\TRIMETHOPRIM
     Indication: ANTIFUNGAL PROPHYLAXIS
     Dosage: 80 MG, 2X/DAY (ON MONDAYS)
     Route: 048
     Dates: start: 20150514
  11. RAPAMUNE [Suspect]
     Active Substance: SIROLIMUS
     Indication: PAIN
     Dosage: 0.5 MG, DAILY
     Route: 048
  12. RAPAMUNE [Suspect]
     Active Substance: SIROLIMUS
     Dosage: 1 MG, DAILY (TAKE 2 TABS)
     Route: 048
  13. OMEGA 3 [FISH OIL;TOCOPHEROL] [Concomitant]
     Active Substance: FISH OIL\TOCOPHEROL
     Dosage: 2 DF, DAILY
     Route: 048
     Dates: start: 20151016

REACTIONS (7)
  - Hyperlipidaemia [Not Recovered/Not Resolved]
  - Product use issue [Unknown]
  - Microcytosis [Recovered/Resolved]
  - Off label use [Unknown]
  - Mean cell volume decreased [Recovered/Resolved]
  - Condition aggravated [Recovered/Resolved]
  - Product use in unapproved indication [Unknown]

NARRATIVE: CASE EVENT DATE: 20150715
